FAERS Safety Report 5944955-2 (Version None)
Quarter: 2008Q4

REPORT INFORMATION
  Report Type: 
  Country: None (occurrence: None)
  Receive Date: 20081107
  Receipt Date: 20081028
  Transmission Date: 20090506
  Serious: Yes (Life-Threatening, Hospitalization)
  Sender: FDA-Public Use
  Company Number: US-KINGPHARMUSA00001-K200801246

PATIENT
  Sex: Female

DRUGS (16)
  1. SEPTRA [Suspect]
     Dosage: BID
     Route: 048
     Dates: start: 20061004
  2. ROMIPLOSTIM [Suspect]
     Indication: IDIOPATHIC THROMBOCYTOPENIC PURPURA
     Dosage: 68 MCG, QW
     Route: 058
     Dates: start: 20060518, end: 20061005
  3. HEPARIN [Suspect]
     Dosage: 34000 IU, QD
     Route: 042
     Dates: start: 20060823, end: 20060831
  4. TEICOPLANIN [Suspect]
     Dosage: 400 MG, UNK
     Route: 042
     Dates: start: 20060831
  5. CEFTRIAXONE [Suspect]
     Dosage: 2 G, QD
     Route: 042
     Dates: start: 20070822
  6. VANCOMYCIN [Suspect]
     Dosage: 3 G, QD
     Route: 042
     Dates: start: 20070822
  7. GENTAMYCINI SULFAS [Suspect]
     Dosage: 340 MG, QD
     Route: 042
     Dates: start: 20060822
  8. TINZAPARIN [Concomitant]
     Dosage: UNK
     Dates: start: 20060901, end: 20061016
  9. CITROSAN [Concomitant]
     Dosage: 500 MG, UNK
     Route: 048
     Dates: start: 20060924
  10. ZOLPIDEM [Concomitant]
     Dosage: 5 MG, UNK
     Dates: start: 20061004
  11. ALPRAZOLAM [Concomitant]
     Dosage: .5 MG, UNK
     Dates: start: 20061016
  12. LEUCOVORIN CALCIUM [Concomitant]
     Dates: start: 20061004
  13. ZOLMITRIPTAN [Concomitant]
     Dosage: 2.5 MG, UNK
     Route: 048
     Dates: start: 20061019
  14. TRAMADOL HYDROCHLORIDE [Concomitant]
     Dosage: 300 MG, QD
     Route: 042
     Dates: start: 20060822, end: 20060830
  15. BETAMETHASONE [Concomitant]
     Dosage: 2 MG, QD
     Route: 048
     Dates: start: 20060825, end: 20060827
  16. DESLORATADINE [Concomitant]
     Dosage: 5 MG, QD
     Route: 048
     Dates: start: 20060825, end: 20060827

REACTIONS (4)
  - APHASIA [None]
  - IDIOPATHIC THROMBOCYTOPENIC PURPURA [None]
  - THROMBOCYTOPENIA [None]
  - TRANSIENT ISCHAEMIC ATTACK [None]
